FAERS Safety Report 21585347 (Version 1)
Quarter: 2022Q4

REPORT INFORMATION
  Report Type: Report from Study
  Country: US (occurrence: US)
  Receive Date: 20221111
  Receipt Date: 20221111
  Transmission Date: 20230112
  Serious: Yes (Other)
  Sender: FDA-Public Use
  Company Number: US-ABBVIE-4196027

PATIENT
  Sex: Male

DRUGS (2)
  1. DUOPA [Suspect]
     Active Substance: CARBIDOPA\LEVODOPA
     Indication: Parkinson^s disease
     Dosage: DOSE: 3.6ML PER HOUR (UP TO 6ML PER HOUR), EXTRA DOSE:2.7ML (UP TO 3ML).?DOSE/FREQUENCY: ADMINIST...
     Route: 050
     Dates: start: 20201124
  2. DUOPA [Suspect]
     Active Substance: CARBIDOPA\LEVODOPA

REACTIONS (3)
  - Neoplasm malignant [Unknown]
  - Abdominal infection [Unknown]
  - Device issue [Not Recovered/Not Resolved]
